FAERS Safety Report 13814793 (Version 1)
Quarter: 2017Q3

REPORT INFORMATION
  Report Type: Spontaneous
  Country: SE (occurrence: SE)
  Receive Date: 20170731
  Receipt Date: 20170731
  Transmission Date: 20171127
  Serious: Yes (Other)
  Sender: FDA-Public Use
  Company Number: SE-TEVA-789220ISR

PATIENT
  Age: 24 Year
  Sex: Female

DRUGS (1)
  1. LAMOTRIGIN ACTAVIS [Suspect]
     Active Substance: LAMOTRIGINE
     Dates: end: 20160628

REACTIONS (3)
  - Pneumonia [Unknown]
  - Pleurisy [Unknown]
  - Myocarditis [Unknown]

NARRATIVE: CASE EVENT DATE: 20150918
